FAERS Safety Report 14466331 (Version 1)
Quarter: 2018Q1

REPORT INFORMATION
  Report Type: Spontaneous
  Country: US (occurrence: US)
  Receive Date: 20180131
  Receipt Date: 20180131
  Transmission Date: 20180509
  Serious: Yes (Death, Other)
  Sender: FDA-Public Use
  Company Number: US-AUROBINDO-AUR-APL-2018-003643

PATIENT
  Age: 62 Year
  Sex: Male

DRUGS (2)
  1. CLOZAPINE. [Suspect]
     Active Substance: CLOZAPINE
     Dosage: 75 MG, UNK
     Route: 065
  2. CLOZAPINE. [Suspect]
     Active Substance: CLOZAPINE
     Indication: SCHIZOPHRENIA
     Dosage: 12.5 MG, DAILY
     Route: 065

REACTIONS (13)
  - Myocardial ischaemia [Unknown]
  - Pneumonia aspiration [Unknown]
  - Pyrexia [Unknown]
  - Myocardial necrosis marker increased [Unknown]
  - Unresponsive to stimuli [Unknown]
  - Hypoxia [Unknown]
  - Chest pain [Unknown]
  - Dyspnoea [Unknown]
  - Septic shock [Fatal]
  - Cough [Unknown]
  - Cardiac failure congestive [Unknown]
  - Hypotension [Unknown]
  - Abdominal pain [Unknown]
